FAERS Safety Report 16548900 (Version 2)
Quarter: 2019Q3

REPORT INFORMATION
  Report Type: Report from Study
  Country: US (occurrence: US)
  Receive Date: 20190709
  Receipt Date: 20190717
  Transmission Date: 20191004
  Serious: Yes (Hospitalization, Other)
  Sender: FDA-Public Use
  Company Number: US-GILEAD-2019-0417362

PATIENT
  Age: 62 Year
  Sex: Male

DRUGS (1)
  1. ELVITEGRAVIR/COBICISTAT/EMTRICITABINE/TENOFOVIR ALAFENAMIDE [Suspect]
     Active Substance: COBICISTAT\ELVITEGRAVIR\EMTRICITABINE\TENOFOVIR
     Indication: HIV INFECTION
     Dosage: 510 MG, QD
     Route: 048

REACTIONS (2)
  - Anxiety [Unknown]
  - Cardiac operation [Recovered/Resolved]

NARRATIVE: CASE EVENT DATE: 201707
